FAERS Safety Report 8499515-9 (Version None)
Quarter: 2012Q3

REPORT INFORMATION
  Report Type: 
  Country: None (occurrence: None)
  Receive Date: 20120710
  Receipt Date: 20120703
  Transmission Date: 20120928
  Serious: Yes (Death, Life-Threatening)
  Sender: FDA-Public Use
  Company Number: FR-ASTRAZENECA-2012SE44697

PATIENT
  Age: 20986 Day
  Sex: Female

DRUGS (2)
  1. NAROPIN [Suspect]
     Dates: start: 20101128, end: 20101128
  2. NAROPIN [Suspect]
     Indication: ANALGESIC THERAPY
     Dates: start: 20101128, end: 20101128

REACTIONS (5)
  - CARDIAC ARREST [None]
  - OVERDOSE [None]
  - CONVULSION [None]
  - RESPIRATORY ARREST [None]
  - ANAPHYLACTIC SHOCK [None]
